FAERS Safety Report 16012211 (Version 1)
Quarter: 2019Q1

REPORT INFORMATION
  Report Type: Spontaneous
  Country: DE (occurrence: DE)
  Receive Date: 20190227
  Receipt Date: 20190227
  Transmission Date: 20190418
  Serious: Yes (Hospitalization, Other)
  Sender: FDA-Public Use
  Company Number: DE-BAYER-2019-018272

PATIENT
  Age: 23 Year
  Sex: Female

DRUGS (1)
  1. JAYDESS [Suspect]
     Active Substance: LEVONORGESTREL
     Indication: CONTRACEPTION
     Dosage: 14 MCG/24HR, CONT
     Route: 015
     Dates: start: 201707, end: 20190110

REACTIONS (4)
  - Device dislocation [None]
  - Retained placenta or membranes [None]
  - Pregnancy with contraceptive device [None]
  - Drug ineffective [None]

NARRATIVE: CASE EVENT DATE: 20190110
